FAERS Safety Report 22595177 (Version 1)
Quarter: 2023Q2

REPORT INFORMATION
  Report Type: Spontaneous
  Country: US (occurrence: US)
  Receive Date: 20230613
  Receipt Date: 20230613
  Transmission Date: 20230722
  Serious: No
  Sender: FDA-Public Use
  Company Number: US-PFIZER INC-PV202300102938

PATIENT
  Age: 5 Decade
  Sex: Female

DRUGS (1)
  1. CIBINQO [Suspect]
     Active Substance: ABROCITINIB
     Dosage: PATIENT SWITCHED FROM EVENING DOSING TO MORNING

REACTIONS (2)
  - Headache [Recovered/Resolved]
  - Nausea [Unknown]
